FAERS Safety Report 16697904 (Version 1)
Quarter: 2019Q3

REPORT INFORMATION
  Report Type: Spontaneous
  Country: HR (occurrence: HR)
  Receive Date: 20190813
  Receipt Date: 20190813
  Transmission Date: 20191004
  Serious: Yes (Other)
  Sender: FDA-Public Use
  Company Number: HR-PFIZER INC-2019340294

PATIENT
  Sex: Female

DRUGS (4)
  1. PREGABALIN. [Suspect]
     Active Substance: PREGABALIN
     Dosage: UNK
  2. NORMABEL [Suspect]
     Active Substance: DIAZEPAM
     Dosage: UNK
  3. PREGABALIN. [Suspect]
     Active Substance: PREGABALIN
     Dosage: 1125 MG, UNK (FIFTEEN OF PREGABALIN 75 MG)
     Route: 048
     Dates: start: 20190512
  4. NORMABEL [Suspect]
     Active Substance: DIAZEPAM
     Dosage: 300 MG, UNK (30 TABLETS OF NORMABEL 10 MG)
     Route: 048
     Dates: start: 20190512

REACTIONS (4)
  - Maternal exposure during pregnancy [Unknown]
  - Somnolence [Unknown]
  - Intentional overdose [Unknown]
  - Suicide attempt [Unknown]

NARRATIVE: CASE EVENT DATE: 20190512
